FAERS Safety Report 20025761 (Version 2)
Quarter: 2021Q4

REPORT INFORMATION
  Report Type: Report from Study
  Country: PL (occurrence: None)
  Receive Date: 20211102
  Receipt Date: 20211129
  Transmission Date: 20220303
  Serious: Yes (Death)
  Sender: FDA-Public Use
  Company Number: PL-ROCHE-2949219

PATIENT
  Age: 74 Year
  Sex: Male
  Weight: 80 kg

DRUGS (17)
  1. ATEZOLIZUMAB [Suspect]
     Active Substance: ATEZOLIZUMAB
     Indication: Renal cell carcinoma
     Dosage: DATE OF MOST RECENT DOSE OF ATEZOLIZUMAB PRIOR TO AE AND SAE- 01/JUN/2021?MOST RECENT DOSE OF ATEZOL
     Route: 041
     Dates: start: 20201216
  2. CABOZANTINIB [Suspect]
     Active Substance: CABOZANTINIB
     Indication: Renal cell carcinoma
     Dosage: DATE OF MOST RECENT DOSE OF CABOZANTINIB PRIOR TO AE AND SAE- 15/FEB/2021?MOST RECENT DOSE OF CABOZA
     Route: 048
     Dates: start: 20201216
  3. NEBIVOLOL [Concomitant]
     Active Substance: NEBIVOLOL
     Indication: Coronary artery disease
     Route: 048
     Dates: start: 2010
  4. CARDURA XL [Concomitant]
     Active Substance: DOXAZOSIN MESYLATE
     Indication: Coronary artery disease
     Route: 048
     Dates: start: 2010
  5. LAPIXEN [Concomitant]
     Indication: Coronary artery disease
     Route: 048
     Dates: start: 2010
  6. ESOMEPRAZOLE MAGNESIUM [Concomitant]
     Active Substance: ESOMEPRAZOLE MAGNESIUM
     Route: 048
     Dates: start: 2015
  7. ATORVAGEN [Concomitant]
     Route: 048
     Dates: start: 2015
  8. TORAMIDE [Concomitant]
     Route: 048
     Dates: start: 2015
  9. SPIRIVA [Concomitant]
     Active Substance: TIOTROPIUM BROMIDE MONOHYDRATE
     Indication: Chronic obstructive pulmonary disease
     Dosage: 10 UG
     Route: 045
     Dates: start: 2012
  10. ZAFIRON [Concomitant]
     Indication: Chronic obstructive pulmonary disease
     Dosage: 12 UG
     Route: 045
     Dates: start: 2012
  11. FLUTIXON [Concomitant]
     Indication: Chronic obstructive pulmonary disease
     Dosage: 250 UG
     Route: 045
     Dates: start: 2012
  12. VENTOLIN [Concomitant]
     Active Substance: ALBUTEROL SULFATE
     Indication: Chronic obstructive pulmonary disease
     Route: 045
     Dates: start: 2012
  13. ACC OPTIMA [Concomitant]
     Indication: Chronic obstructive pulmonary disease
     Dosage: 100 UG
     Route: 045
     Dates: start: 2012
  14. CARZAP [Concomitant]
     Route: 048
     Dates: start: 2015
  15. TIZANIDINE [Concomitant]
     Active Substance: TIZANIDINE
     Route: 048
     Dates: start: 2016
  16. INSULIN HUMAN [Concomitant]
     Active Substance: INSULIN HUMAN
     Indication: Diabetes mellitus
     Route: 048
     Dates: start: 2015
  17. INSULIN HUMAN [Concomitant]
     Active Substance: INSULIN HUMAN
     Indication: Diabetes mellitus
     Route: 048
     Dates: start: 2015

REACTIONS (1)
  - Death [Fatal]

NARRATIVE: CASE EVENT DATE: 20210730
